FAERS Safety Report 13848291 (Version 1)
Quarter: 2017Q3

REPORT INFORMATION
  Report Type: Spontaneous
  Country: None (occurrence: US)
  Receive Date: 20170808
  Receipt Date: 20170808
  Transmission Date: 20171127
  Serious: Yes (Hospitalization)
  Sender: FDA-Public Use
  Company Number: None

PATIENT
  Age: 45 Year
  Sex: Female
  Weight: 54 kg

DRUGS (2)
  1. EVEROLIMUS (RAD-001) [Suspect]
     Active Substance: EVEROLIMUS
     Dates: end: 20170724
  2. NEXAVAR [Suspect]
     Active Substance: SORAFENIB
     Dates: end: 20161012

REACTIONS (5)
  - Back pain [None]
  - Chills [None]
  - Malignant neoplasm progression [None]
  - Therapy change [None]
  - Pyelonephritis [None]

NARRATIVE: CASE EVENT DATE: 20170726
